FAERS Safety Report 6931070-4 (Version None)
Quarter: 2010Q3

REPORT INFORMATION
  Report Type: 
  Country: None (occurrence: None)
  Receive Date: 20100818
  Receipt Date: 20100810
  Transmission Date: 20110219
  Serious: No
  Sender: FDA-Public Use
  Company Number: SG-MILLENNIUM PHARMACEUTICALS, INC.-2010-03753

PATIENT

DRUGS (3)
  1. VELCADE [Suspect]
     Indication: MULTIPLE MYELOMA
  2. DOXIL                              /00330902/ [Suspect]
     Indication: MULTIPLE MYELOMA
  3. LAMIVUDINE [Concomitant]
     Indication: PROPHYLAXIS

REACTIONS (1)
  - HEPATITIS B [None]
